FAERS Safety Report 5598994-4 (Version None)
Quarter: 2008Q1

REPORT INFORMATION
  Report Type: 
  Country: None (occurrence: None)
  Receive Date: 20080117
  Receipt Date: 20080109
  Transmission Date: 20080703
  Serious: Yes (Death, Hospitalization)
  Sender: FDA-Public Use
  Company Number: 2008US000155

PATIENT
  Age: 52 Year
  Sex: Male

DRUGS (5)
  1. PROGRAF [Suspect]
     Indication: LIVER TRANSPLANT
     Dosage: 2 MG, BID, ORAL
     Route: 048
  2. PREDNISONE TAB [Concomitant]
  3. LANTUS [Concomitant]
  4. METOPROLOL TARTRATE [Concomitant]
  5. NEURONTIN [Concomitant]

REACTIONS (4)
  - COMPLICATIONS OF TRANSPLANTED LIVER [None]
  - DIABETES MELLITUS INADEQUATE CONTROL [None]
  - HEPATIC ENCEPHALOPATHY [None]
  - HEPATIC FAILURE [None]
